FAERS Safety Report 9150383 (Version 3)
Quarter: 2013Q2

REPORT INFORMATION
  Report Type: Spontaneous
  Country: BR (occurrence: BR)
  Receive Date: 20130308
  Receipt Date: 20130517
  Transmission Date: 20140414
  Serious: Yes (Other)
  Sender: FDA-Public Use
  Company Number: BR-ASTRAZENECA-2013SE14223

PATIENT
  Age: 63 Year
  Sex: Female
  Weight: 61 kg

DRUGS (10)
  1. NEXIUM [Suspect]
     Indication: OESOPHAGITIS
     Route: 048
  2. CRESTOR [Suspect]
     Indication: BLOOD CHOLESTEROL INCREASED
     Route: 048
     Dates: start: 2010
  3. CRESTOR [Suspect]
     Indication: BLOOD CHOLESTEROL ABNORMAL
     Route: 048
     Dates: start: 2010
  4. CRESTOR [Suspect]
     Indication: BLOOD CHOLESTEROL INCREASED
     Dosage: HALF TABLET DAILY
     Route: 048
     Dates: end: 20130226
  5. CRESTOR [Suspect]
     Indication: BLOOD CHOLESTEROL ABNORMAL
     Dosage: HALF TABLET DAILY
     Route: 048
     Dates: end: 20130226
  6. CRESTOR [Suspect]
     Indication: BLOOD CHOLESTEROL INCREASED
     Route: 048
     Dates: start: 201302
  7. CRESTOR [Suspect]
     Indication: BLOOD CHOLESTEROL ABNORMAL
     Route: 048
     Dates: start: 201302
  8. FLUOXETINE [Concomitant]
     Route: 048
     Dates: start: 2009
  9. ALENIA [Concomitant]
     Indication: DYSPNOEA
     Dosage: 12/400 MCG
     Route: 055
     Dates: start: 2011
  10. ALENIA [Concomitant]
     Indication: DYSPNOEA
     Dosage: 320/9 MCG
     Route: 055
     Dates: start: 2011

REACTIONS (5)
  - Coronary artery occlusion [Recovered/Resolved]
  - Dyspepsia [Unknown]
  - Dyspnoea [Recovering/Resolving]
  - Blood cholesterol increased [Unknown]
  - Off label use [Not Recovered/Not Resolved]
